FAERS Safety Report 14600106 (Version 6)
Quarter: 2019Q4

REPORT INFORMATION
  Report Type: Report from Study
  Country: US (occurrence: US)
  Receive Date: 20180305
  Receipt Date: 20191010
  Transmission Date: 20200122
  Serious: Yes (Death)
  Sender: FDA-Public Use
  Company Number: US-ASTRAZENECA-2018SE27380

PATIENT
  Age: 13835 Day
  Sex: Female
  Weight: 53.8 kg

DRUGS (15)
  1. ADXS11-001 [Suspect]
     Active Substance: INVESTIGATIONAL PRODUCT
     Indication: PAPILLOMA VIRAL INFECTION
     Dosage: 1 X 10^9 CFU
     Route: 042
     Dates: start: 20170519, end: 20180226
  2. FLAXSEED [Concomitant]
     Active Substance: FLAX SEED
     Route: 065
     Dates: start: 2016
  3. TRANSDERM SCOP [Concomitant]
     Active Substance: SCOPOLAMINE
     Route: 065
     Dates: start: 20180226
  4. CALCIUM [Concomitant]
     Active Substance: CALCIUM
     Route: 065
     Dates: start: 201612
  5. NEURONTIN [Concomitant]
     Active Substance: GABAPENTIN
     Route: 065
     Dates: end: 20180225
  6. MULTIVITAMIN [Concomitant]
     Active Substance: VITAMINS
     Route: 065
  7. MEDI4736 [Suspect]
     Active Substance: DURVALUMAB
     Indication: PAPILLOMA VIRAL INFECTION
     Route: 042
     Dates: start: 20170519, end: 20180226
  8. CALCIUM + D DUETTO [Concomitant]
     Active Substance: CALCIUM\CHOLECALCIFEROL
     Dosage: NIGHTLY
     Route: 048
  9. IBUPROFEN. [Concomitant]
     Active Substance: IBUPROFEN
     Route: 065
  10. ZOFRAN [Concomitant]
     Active Substance: ONDANSETRON HYDROCHLORIDE
     Route: 065
  11. COMPAZINE [Concomitant]
     Active Substance: PROCHLORPERAZINE MALEATE
     Route: 065
  12. LACTAID [Concomitant]
     Active Substance: LACTASE
     Route: 065
     Dates: start: 20170911
  13. CLARITIN [Concomitant]
     Active Substance: LORATADINE
     Route: 065
     Dates: start: 20170415
  14. AMPICILLIN [Concomitant]
     Active Substance: AMPICILLIN
     Route: 065
  15. B6-VITAMIIN NS [Concomitant]
     Route: 065
     Dates: start: 201605

REACTIONS (1)
  - Acute respiratory failure [Fatal]

NARRATIVE: CASE EVENT DATE: 20180226
